FAERS Safety Report 14248094 (Version 1)
Quarter: 2017Q4

REPORT INFORMATION
  Report Type: Spontaneous
  Country: CN (occurrence: CN)
  Receive Date: 20171204
  Receipt Date: 20171204
  Transmission Date: 20180321
  Serious: Yes (Other)
  Sender: FDA-Public Use
  Company Number: CN-MYLANLABS-2017M1075997

PATIENT
  Age: 29 Year
  Sex: Female

DRUGS (2)
  1. IFOSFAMIDE. [Suspect]
     Active Substance: IFOSFAMIDE
     Indication: PANCREATIC SARCOMA
     Dosage: UNK
     Route: 065
     Dates: start: 201507
  2. EPIRUBICIN [Suspect]
     Active Substance: EPIRUBICIN
     Indication: PANCREATIC SARCOMA
     Dosage: UNK
     Route: 065
     Dates: start: 201507

REACTIONS (2)
  - Bone marrow failure [Unknown]
  - Mucosal ulceration [Unknown]
